FAERS Safety Report 8787413 (Version 1)
Quarter: 2012Q4

REPORT INFORMATION
  Report Type: 
  Country: US (occurrence: US)
  Receive Date: 20120914
  Receipt Date: 20120914
  Transmission Date: 20130627
  Serious: No
  Sender: FDA-Public Use
  Company Number: US-VERTEX PHARMACEUTICAL INC.-AE-2012-010695

PATIENT
  Age: 55 Year
  Sex: Female
  Weight: 52.73 kg

DRUGS (11)
  1. INCIVEK [Suspect]
     Indication: HEPATITIS C
     Route: 048
     Dates: start: 20120106, end: 20120328
  2. RIBAVIRIN [Concomitant]
     Indication: HEPATITIS C
     Route: 048
     Dates: start: 20120106, end: 20120207
  3. RIBAVIRIN [Concomitant]
     Route: 048
     Dates: start: 20120207, end: 20120529
  4. RIBAVIRIN [Concomitant]
     Route: 048
     Dates: start: 20120529
  5. PEGASYS [Concomitant]
     Indication: HEPATITIS C
     Route: 058
     Dates: start: 20120106, end: 20120207
  6. PEGASYS [Concomitant]
     Route: 058
     Dates: start: 20120207, end: 201206
  7. PEGASYS [Concomitant]
     Route: 058
     Dates: start: 201206
  8. METHADONE [Concomitant]
     Indication: PAIN
     Route: 048
  9. MORPHINE [Concomitant]
     Indication: PAIN
     Route: 048
  10. TRAZODONE [Concomitant]
     Indication: DEPRESSION
     Route: 048
  11. VALERIAN [Concomitant]
     Route: 048

REACTIONS (10)
  - Sciatica [Not Recovered/Not Resolved]
  - Dyspnoea [Not Recovered/Not Resolved]
  - White blood cell count decreased [Not Recovered/Not Resolved]
  - Headache [Recovered/Resolved]
  - Anxiety [Not Recovered/Not Resolved]
  - Restless legs syndrome [Not Recovered/Not Resolved]
  - Fatigue [Not Recovered/Not Resolved]
  - Anaemia [Recovered/Resolved]
  - Diarrhoea [Not Recovered/Not Resolved]
  - Vomiting [Recovered/Resolved]
